FAERS Safety Report 5346726-7 (Version None)
Quarter: 2007Q2

REPORT INFORMATION
  Report Type: 
  Country: None (occurrence: None)
  Receive Date: 20070604
  Receipt Date: 20070404
  Transmission Date: 20071010
  Serious: Yes (Other)
  Sender: FDA-Public Use
  Company Number: 2007SP006281

PATIENT

DRUGS (2)
  1. TEMODAL [Suspect]
     Indication: MALIGNANT MELANOMA
  2. PEG-INTRON [Suspect]
     Indication: MALIGNANT MELANOMA

REACTIONS (1)
  - SARCOIDOSIS [None]
